FAERS Safety Report 4654599-0 (Version None)
Quarter: 2005Q2

REPORT INFORMATION
  Report Type: 
  Country: None (occurrence: None)
  Receive Date: 20050503
  Receipt Date: 20050503
  Transmission Date: 20051028
  Serious: Yes (Hospitalization)
  Sender: FDA-Public Use
  Company Number: None

PATIENT
  Age: 60 Year
  Sex: Male
  Weight: 106.5953 kg

DRUGS (1)
  1. ARIPIPRAZOLE   15MG [Suspect]
     Indication: PSYCHOTIC DISORDER
     Dosage: 15MG  QAM  ORAL
     Route: 048
     Dates: start: 20041026, end: 20041029

REACTIONS (3)
  - ANXIETY [None]
  - DYSPNOEA [None]
  - INSOMNIA [None]
